FAERS Safety Report 10208528 (Version 1)
Quarter: 2014Q2

REPORT INFORMATION
  Report Type: Report from Study
  Country: NL (occurrence: NL)
  Receive Date: 20140530
  Receipt Date: 20140530
  Transmission Date: 20141212
  Serious: Yes (Hospitalization)
  Sender: FDA-Public Use
  Company Number: NL-GLAXOSMITHKLINE-B0998380A

PATIENT
  Age: 67 Year
  Sex: Male

DRUGS (6)
  1. SUMATRIPTAN [Suspect]
     Indication: MIGRAINE
     Dates: start: 20090928, end: 20091006
  2. PLACEBO [Suspect]
     Indication: IMMUNISATION
     Route: 030
     Dates: start: 20090929, end: 20090929
  3. DURATEARS [Concomitant]
  4. CARBOMER [Concomitant]
  5. ESOMEPRAZOLE [Concomitant]
  6. METOPROLOL [Concomitant]

REACTIONS (1)
  - Transient ischaemic attack [Recovered/Resolved]
